FAERS Safety Report 10098780 (Version 3)
Quarter: 2014Q2

REPORT INFORMATION
  Report Type: Spontaneous
  Country: DE (occurrence: DE)
  Receive Date: 20140423
  Receipt Date: 20140514
  Transmission Date: 20141212
  Serious: Yes (Hospitalization)
  Sender: FDA-Public Use
  Company Number: DE-PFIZER INC-2014104998

PATIENT
  Age: 55 Year
  Sex: Female
  Weight: 52 kg

DRUGS (5)
  1. LYRICA [Suspect]
     Indication: PAIN
     Dosage: 25 MG, DAILY
     Route: 048
     Dates: start: 20140120, end: 20140209
  2. LYRICA [Suspect]
     Indication: HERPES ZOSTER
     Dosage: 50 MG, DAILY
     Route: 048
     Dates: start: 20140210, end: 20140227
  3. IBUPROFEN [Concomitant]
     Indication: PAIN
     Dosage: OCCASIONALLY
     Route: 048
  4. IBUPROFEN [Concomitant]
     Indication: HERPES ZOSTER
  5. ZOSTEX [Concomitant]
     Indication: HERPES ZOSTER
     Dosage: UNK
     Route: 048
     Dates: start: 20131223, end: 20131229

REACTIONS (10)
  - Hepatitis [Recovering/Resolving]
  - Asthenia [Recovering/Resolving]
  - Weight decreased [Recovering/Resolving]
  - Jaundice [Recovering/Resolving]
  - Chromaturia [Recovering/Resolving]
  - Hyperbilirubinaemia [Recovering/Resolving]
  - Aspartate aminotransferase increased [Recovering/Resolving]
  - Alanine aminotransferase increased [Recovering/Resolving]
  - Gamma-glutamyltransferase increased [Recovering/Resolving]
  - Blood alkaline phosphatase increased [Recovered/Resolved]
